FAERS Safety Report 21409826 (Version 1)
Quarter: 2022Q4

REPORT INFORMATION
  Report Type: Report from Study
  Country: CA (occurrence: CA)
  Receive Date: 20221005
  Receipt Date: 20221005
  Transmission Date: 20230113
  Serious: Yes (Other)
  Sender: FDA-Public Use
  Company Number: CA-BIOGEN-2022BI01112225

PATIENT
  Age: 36 Year
  Sex: Female

DRUGS (5)
  1. TYSABRI [Suspect]
     Active Substance: NATALIZUMAB
     Indication: Multiple sclerosis
     Route: 050
     Dates: start: 20120224
  2. TYSABRI [Suspect]
     Active Substance: NATALIZUMAB
     Route: 050
     Dates: start: 20120424
  3. TYSABRI [Suspect]
     Active Substance: NATALIZUMAB
     Route: 050
     Dates: start: 20120824
  4. TYSABRI [Suspect]
     Active Substance: NATALIZUMAB
     Route: 050
     Dates: start: 20120224
  5. DALFAMPRIDINE [Suspect]
     Active Substance: DALFAMPRIDINE
     Indication: Multiple sclerosis
     Route: 050
     Dates: start: 20130528

REACTIONS (37)
  - Traumatic shock [Unknown]
  - Prescribed underdose [Not Recovered/Not Resolved]
  - Product dose omission issue [Unknown]
  - Bone pain [Not Recovered/Not Resolved]
  - Breast pain [Not Recovered/Not Resolved]
  - SARS-CoV-2 test positive [Not Recovered/Not Resolved]
  - Skin infection [Not Recovered/Not Resolved]
  - Injury [Not Recovered/Not Resolved]
  - Lymphadenopathy [Unknown]
  - Synovial cyst [Unknown]
  - Aphonia [Unknown]
  - Multiple sclerosis [Unknown]
  - Fat tissue increased [Unknown]
  - Dermatitis [Unknown]
  - Dysphonia [Unknown]
  - Motor dysfunction [Not Recovered/Not Resolved]
  - Fall [Recovered/Resolved]
  - Pyrexia [Unknown]
  - Sebaceous glands overactivity [Unknown]
  - Skin depigmentation [Unknown]
  - Dermal cyst [Unknown]
  - Face injury [Unknown]
  - Impaired healing [Unknown]
  - Pain of skin [Unknown]
  - Vaginal disorder [Unknown]
  - Skin swelling [Unknown]
  - Decreased appetite [Unknown]
  - Nightmare [Unknown]
  - Cutaneous symptom [Unknown]
  - Anxiety [Unknown]
  - Pain [Unknown]
  - Erythema [Unknown]
  - Infection [Not Recovered/Not Resolved]
  - Herpes zoster [Unknown]
  - Limb injury [Not Recovered/Not Resolved]
  - Oral infection [Unknown]
  - Chest pain [Unknown]

NARRATIVE: CASE EVENT DATE: 20120224
